FAERS Safety Report 22274974 (Version 1)
Quarter: 2023Q2

REPORT INFORMATION
  Report Type: Spontaneous
  Country: EG (occurrence: EG)
  Receive Date: 20230502
  Receipt Date: 20230502
  Transmission Date: 20230722
  Serious: Yes (Hospitalization, Other)
  Sender: FDA-Public Use
  Company Number: EG-ELI_LILLY_AND_COMPANY-EG202304014026

PATIENT
  Age: 7 Year
  Sex: Female
  Weight: 20 kg

DRUGS (2)
  1. STRATTERA [Interacting]
     Active Substance: ATOMOXETINE HYDROCHLORIDE
     Indication: Attention deficit hyperactivity disorder
     Dosage: 25 MG, DAILY
     Route: 048
     Dates: start: 2018
  2. RABIES VACCINE [Interacting]
     Active Substance: RABIES VACCINE
     Indication: Animal bite
     Dosage: UNK, UNKNOWN(TOTAL 5 DOSES)
     Route: 030
     Dates: start: 202207

REACTIONS (6)
  - Animal bite [Unknown]
  - Yellow skin [Recovered/Resolved]
  - Heart rate increased [Recovered/Resolved]
  - Blood pressure increased [Recovered/Resolved]
  - Hyperhidrosis [Recovered/Resolved]
  - Drug interaction [Unknown]

NARRATIVE: CASE EVENT DATE: 20220701
